FAERS Safety Report 8227284-6 (Version None)
Quarter: 2012Q1

REPORT INFORMATION
  Report Type: 
  Country: None (occurrence: None)
  Receive Date: 20120322
  Receipt Date: 20120313
  Transmission Date: 20120608
  Serious: Yes (Hospitalization, Other)
  Sender: FDA-Public Use
  Company Number: PHFR2012GB001529

PATIENT
  Sex: Male

DRUGS (3)
  1. CLOZARIL [Suspect]
     Indication: SCHIZOPHRENIA
     Route: 048
     Dates: start: 20110818, end: 20120220
  2. MADOPAR [Suspect]
     Dosage: 125 MG
  3. LORAZEPAM [Suspect]

REACTIONS (2)
  - PNEUMONIA ASPIRATION [None]
  - LOWER RESPIRATORY TRACT INFECTION [None]
